FAERS Safety Report 17335071 (Version 2)
Quarter: 2020Q2

REPORT INFORMATION
  Report Type: Spontaneous
  Country: SK (occurrence: SK)
  Receive Date: 20200128
  Receipt Date: 20200623
  Transmission Date: 20200713
  Serious: Yes (Hospitalization)
  Sender: FDA-Public Use
  Company Number: SK-009507513-2001SVK009721

PATIENT
  Age: 72 Year
  Sex: Female
  Weight: 65 kg

DRUGS (4)
  1. PARALEN [Concomitant]
     Dosage: 500 MILLIGRAM, UNK
  2. MAGNE B6 [Concomitant]
     Active Substance: MAGNESIUM\PYRIDOXINE
     Dosage: 1 DOSAGE FORM, UNK
  3. ANOPYRIN [Concomitant]
     Active Substance: ASPIRIN
     Dosage: 100 MILLIGRAM, UNK
  4. INTRON A [Suspect]
     Active Substance: INTERFERON ALFA-2B
     Indication: POLYCYTHAEMIA VERA
     Dosage: 3 MEGA-INTERNATIONAL UNIT, QW
     Route: 058
     Dates: start: 20180912, end: 20190115

REACTIONS (4)
  - Cerebrovascular accident [Recovered/Resolved]
  - Influenza like illness [Unknown]
  - Hemiparesis [Recovered/Resolved]
  - Hemianaesthesia [Recovered/Resolved]

NARRATIVE: CASE EVENT DATE: 201901
